FAERS Safety Report 15417211 (Version 1)
Quarter: 2018Q3

REPORT INFORMATION
  Report Type: Spontaneous
  Country: US (occurrence: US)
  Receive Date: 20180924
  Receipt Date: 20180924
  Transmission Date: 20181010
  Serious: Yes (Hospitalization, Other)
  Sender: FDA-Public Use
  Company Number: US-AUROBINDO-AUR-APL-2014-04802

PATIENT
  Age: 7 Year
  Sex: Female

DRUGS (4)
  1. CYPROHEPTADINE. [Concomitant]
     Active Substance: CYPROHEPTADINE
     Indication: PRODUCT USED FOR UNKNOWN INDICATION
     Dosage: AT BEDTIME ; AS NECESSARY
  2. TOPIRAMATE. [Suspect]
     Active Substance: TOPIRAMATE
     Indication: SEIZURE
     Dosage: UNK UNK,UNK,,25 MG AT BEDTIME
     Route: 065
  3. CYPROHEPTADINE. [Concomitant]
     Active Substance: CYPROHEPTADINE
     Indication: PARTIAL SEIZURES
     Dosage: UNK UNK,AS NECESSARY,,5 ML AT BEDTIME
     Route: 065
  4. TOPIRAMATE. [Suspect]
     Active Substance: TOPIRAMATE
     Indication: HEADACHE

REACTIONS (12)
  - Visual impairment [Recovering/Resolving]
  - Intraocular pressure increased [Recovered/Resolved]
  - Vision blurred [Recovering/Resolving]
  - Photophobia [Recovered/Resolved]
  - Drug hypersensitivity [Unknown]
  - Acute myopia [Recovered/Resolved]
  - Angle closure glaucoma [Recovering/Resolving]
  - Eyelid oedema [Recovered/Resolved]
  - Toxicity to various agents [Recovered/Resolved]
  - Myopia [Recovering/Resolving]
  - Lacrimation increased [Recovering/Resolving]
  - Ocular hyperaemia [Recovering/Resolving]
